FAERS Safety Report 10070210 (Version 1)
Quarter: 2014Q2

REPORT INFORMATION
  Report Type: Spontaneous
  Country: US (occurrence: None)
  Receive Date: 20140409
  Receipt Date: 20140409
  Transmission Date: 20141212
  Serious: No
  Sender: FDA-Public Use
  Company Number: None

PATIENT
  Age: 57 Year
  Sex: Female

DRUGS (1)
  1. TECFIDERA [Suspect]
     Indication: MULTIPLE SCLEROSIS
     Dosage: 120MG, TWICE DAILY, PO?
     Route: 048
     Dates: start: 20140313, end: 20140313

REACTIONS (10)
  - Swollen tongue [None]
  - Lip swelling [None]
  - Pharyngeal oedema [None]
  - Blister [None]
  - Rash [None]
  - Cough [None]
  - Hyperhidrosis [None]
  - Chills [None]
  - Dizziness [None]
  - Dyspnoea [None]
